FAERS Safety Report 11634919 (Version 1)
Quarter: 2015Q4

REPORT INFORMATION
  Report Type: Spontaneous
  Country: US (occurrence: US)
  Receive Date: 20151015
  Receipt Date: 20151015
  Transmission Date: 20160304
  Serious: Yes (Hospitalization, Other)
  Sender: FDA-Public Use
  Company Number: US-SA-2015SA006213

PATIENT
  Age: 11 Month
  Sex: Male
  Weight: 6.27 kg

DRUGS (1)
  1. MYOZYME [Suspect]
     Active Substance: ALGLUCOSIDASE ALFA
     Indication: GLYCOGEN STORAGE DISEASE TYPE II
     Route: 041
     Dates: start: 20140429

REACTIONS (11)
  - Use of accessory respiratory muscles [Unknown]
  - Oxygen saturation decreased [Unknown]
  - Saliva altered [Unknown]
  - Dyspnoea [Unknown]
  - Respiratory failure [Unknown]
  - Nasal flaring [Unknown]
  - Lethargy [Unknown]
  - Crying [Unknown]
  - Respiratory muscle weakness [Unknown]
  - Pyrexia [Unknown]
  - Hypotonia [Unknown]

NARRATIVE: CASE EVENT DATE: 20141124
